FAERS Safety Report 6841916-6 (Version None)
Quarter: 2010Q3

REPORT INFORMATION
  Report Type: 
  Country: None (occurrence: None)
  Receive Date: 20100714
  Receipt Date: 20070821
  Transmission Date: 20110219
  Serious: No
  Sender: FDA-Public Use
  Company Number: US-PFIZER INC-2007059493

PATIENT
  Sex: Female
  Weight: 138.8 kg

DRUGS (18)
  1. CHANTIX [Suspect]
     Indication: SMOKING CESSATION THERAPY
     Route: 048
     Dates: start: 20061206, end: 20070205
  2. ZETIA [Concomitant]
  3. AMLODIPINE BESYLATE AND BENAZEPRIL HCL [Concomitant]
  4. PAXIL [Concomitant]
  5. POTASSIUM CHLORIDE [Concomitant]
  6. CYMBALTA [Concomitant]
  7. FLEXERIL [Concomitant]
  8. FUROSEMIDE [Concomitant]
  9. TRAMADOL [Concomitant]
  10. OMEPRAZOLE [Concomitant]
     Indication: GASTROOESOPHAGEAL REFLUX DISEASE
  11. GABAPENTIN [Concomitant]
  12. KETOCONAZOLE [Concomitant]
     Indication: CANDIDIASIS
  13. CLONAZEPAM [Concomitant]
  14. MONTELUKAST SODIUM [Concomitant]
  15. COD-LIVER OIL [Concomitant]
  16. TIOTROPIUM BROMIDE [Concomitant]
  17. SALBUTAMOL SULFATE [Concomitant]
  18. ADVAIR DISKUS 100/50 [Concomitant]

REACTIONS (2)
  - DRUG INEFFECTIVE [None]
  - NAUSEA [None]
